FAERS Safety Report 18839690 (Version 1)
Quarter: 2021Q1

REPORT INFORMATION
  Report Type: Report from Study
  Country: US (occurrence: US)
  Receive Date: 20210204
  Receipt Date: 20210204
  Transmission Date: 20210419
  Serious: No
  Sender: FDA-Public Use
  Company Number: US-EXELIXIS-CABO-20035122

PATIENT
  Sex: Female
  Weight: 115.96 kg

DRUGS (1)
  1. CABOMETYX [Suspect]
     Active Substance: CABOZANTINIB S-MALATE
     Indication: RENAL CANCER
     Dosage: 40 MG, QD
     Dates: start: 20200919

REACTIONS (5)
  - Nausea [Recovering/Resolving]
  - Alopecia [Recovered/Resolved]
  - Fatigue [Unknown]
  - Faeces soft [Unknown]
  - Decreased appetite [Unknown]
